FAERS Safety Report 8271539-6 (Version None)
Quarter: 2012Q1

REPORT INFORMATION
  Report Type: 
  Country: None (occurrence: None)
  Receive Date: 20120327
  Receipt Date: 20100323
  Transmission Date: 20120608
  Serious: Yes (Life-Threatening, Other)
  Sender: FDA-Public Use
  Company Number: PHEH2010US03380

PATIENT
  Age: 77 Year
  Sex: Male
  Weight: 84.4 kg

DRUGS (1)
  1. GLEEVEC [Suspect]
     Indication: CHRONIC MYELOID LEUKAEMIA
     Dosage: 400 MG, QD, ORAL
     Route: 048
     Dates: start: 20091007, end: 20100211

REACTIONS (2)
  - CHRONIC MYELOID LEUKAEMIA [None]
  - INFECTION [None]
